FAERS Safety Report 19772991 (Version 2)
Quarter: 2021Q4

REPORT INFORMATION
  Report Type: Spontaneous
  Country: CO (occurrence: CO)
  Receive Date: 20210901
  Receipt Date: 20211011
  Transmission Date: 20220303
  Serious: Yes (Other)
  Sender: FDA-Public Use
  Company Number: CO-PFIZER INC-202101082935

PATIENT
  Age: 56 Year
  Sex: Female

DRUGS (2)
  1. ENBREL [Suspect]
     Active Substance: ETANERCEPT
     Indication: Rheumatoid arthritis
     Dosage: 50 MG, WEEKLY ON WEDNESDAYS
     Route: 058
     Dates: start: 201908
  2. COVID-19 VACCINE [Concomitant]
     Dosage: 1ST DOSE

REACTIONS (7)
  - Gastrointestinal disorder [Unknown]
  - Gastritis [Unknown]
  - Flatulence [Unknown]
  - Feeding disorder [Unknown]
  - Intentional product misuse [Unknown]
  - Platelet count decreased [Unknown]
  - Arthralgia [Unknown]

NARRATIVE: CASE EVENT DATE: 20210101
